FAERS Safety Report 15320742 (Version 1)
Quarter: 2018Q3

REPORT INFORMATION
  Report Type: Spontaneous
  Country: US (occurrence: US)
  Receive Date: 20180821
  Receipt Date: 20180821
  Transmission Date: 20181010
  Serious: No
  Sender: FDA-Public Use
  Company Number: None

PATIENT
  Age: 71 Year
  Sex: Male
  Weight: 81.45 kg

DRUGS (5)
  1. AMLODIPINE BESYLATE 10 MG. TAB [Suspect]
     Active Substance: AMLODIPINE BESYLATE
     Indication: HYPERTENSION
     Dosage: ?          QUANTITY:1 TABLET(S);?
     Route: 048
     Dates: start: 20171116
  2. XIIDRA [Concomitant]
     Active Substance: LIFITEGRAST
  3. FISH OIL [Concomitant]
     Active Substance: FISH OIL
  4. FLONASE [Concomitant]
     Active Substance: FLUTICASONE PROPIONATE
  5. MEN OVER FIFTY DAILY VITAMIN [Concomitant]

REACTIONS (5)
  - Product substitution issue [None]
  - Erectile dysfunction [None]
  - Fatigue [None]
  - Sleep disorder [None]
  - Tinnitus [None]

NARRATIVE: CASE EVENT DATE: 20180821
